FAERS Safety Report 14738023 (Version 1)
Quarter: 2018Q2

REPORT INFORMATION
  Report Type: Spontaneous
  Country: US (occurrence: US)
  Receive Date: 20180409
  Receipt Date: 20180409
  Transmission Date: 20180711
  Serious: No
  Sender: FDA-Public Use
  Company Number: US-IPSEN BIOPHARMACEUTICALS, INC.-2018-04445

PATIENT
  Age: 48 Year
  Sex: Female

DRUGS (1)
  1. DYSPORT [Suspect]
     Active Substance: ABOBOTULINUMTOXINA
     Indication: SKIN COSMETIC PROCEDURE
     Dosage: 90 IU
     Route: 065
     Dates: start: 20180224, end: 20180224

REACTIONS (11)
  - Eye swelling [Unknown]
  - Ear discomfort [Unknown]
  - Vomiting [Unknown]
  - Erythema [Unknown]
  - Dizziness [Unknown]
  - Flushing [Unknown]
  - Hypoaesthesia [Not Recovered/Not Resolved]
  - Dark circles under eyes [Not Recovered/Not Resolved]
  - Injection site hypoaesthesia [Not Recovered/Not Resolved]
  - Brow ptosis [Not Recovered/Not Resolved]
  - Eye oedema [Unknown]

NARRATIVE: CASE EVENT DATE: 20180301
